FAERS Safety Report 15686660 (Version 3)
Quarter: 2018Q4

REPORT INFORMATION
  Report Type: Not Available
  Country: US (occurrence: US)
  Receive Date: 20181204
  Receipt Date: 20181226
  Transmission Date: 20190205
  Serious: Yes (Death, Other)
  Sender: FDA-Public Use
  Company Number: US-NEUROCRINE BIOSCIENCES INC.-2018NBI03443

PATIENT
  Age: 80 Year
  Sex: Female

DRUGS (10)
  1. INGREZZA [Suspect]
     Active Substance: VALBENAZINE
     Route: 048
     Dates: start: 20171117, end: 20181115
  2. SUCRALFATE. [Concomitant]
     Active Substance: SUCRALFATE
     Dosage: TWO TABLETS IN THE MORNING BEFORE BREAKFAST AND TWO TABLETS AT NIGHT BEFORE DINNER
  3. ARICEPT [Concomitant]
     Active Substance: DONEPEZIL HYDROCHLORIDE
     Dosage: BEFORE DINNER
  4. FENTANYL. [Concomitant]
     Active Substance: FENTANYL
  5. SEROQUEL [Concomitant]
     Active Substance: QUETIAPINE FUMARATE
     Dosage: AT NIGHT TIME
  6. METFORMIN [Concomitant]
     Active Substance: METFORMIN HYDROCHLORIDE
     Dosage: BEFORE DINNER
  7. MELATONIN [Concomitant]
     Active Substance: MELATONIN
     Dosage: AT BED TIME
  8. INGREZZA [Suspect]
     Active Substance: VALBENAZINE
     Indication: TARDIVE DYSKINESIA
     Route: 048
     Dates: start: 20171109, end: 20171116
  9. TRINTELLIX [Concomitant]
     Active Substance: VORTIOXETINE HYDROBROMIDE
     Dosage: BEFORE DINNER
  10. MORPHINE [Concomitant]
     Active Substance: MORPHINE

REACTIONS (3)
  - Parkinson^s disease [Fatal]
  - Fall [Unknown]
  - Compression fracture [Unknown]

NARRATIVE: CASE EVENT DATE: 201811
